FAERS Safety Report 4506249-1 (Version None)
Quarter: 2004Q4

REPORT INFORMATION
  Report Type: 
  Country: None (occurrence: None)
  Receive Date: 20041119
  Receipt Date: 20041109
  Transmission Date: 20050328
  Serious: Yes (Death, Life-Threatening, Hospitalization, Disabling)
  Sender: FDA-Public Use
  Company Number: US-MERCK-0411USA01716

PATIENT
  Age: 77 Year
  Sex: Female

DRUGS (8)
  1. VIOXX [Suspect]
     Indication: ARTHRITIS
     Route: 048
     Dates: start: 19990101, end: 20040606
  2. CARDIZEM [Concomitant]
     Route: 065
  3. ZESTORETIC [Concomitant]
     Route: 048
  4. LIPITOR [Concomitant]
     Route: 065
  5. DIABETA [Concomitant]
     Route: 065
  6. NITRO-DUR [Concomitant]
     Route: 065
  7. ATENOLOL MSD [Concomitant]
     Route: 048
  8. ELAVIL [Concomitant]
     Route: 048

REACTIONS (1)
  - MYOCARDIAL INFARCTION [None]
